FAERS Safety Report 12495395 (Version 2)
Quarter: 2016Q2

REPORT INFORMATION
  Report Type: Other
  Country: DE (occurrence: DE)
  Receive Date: 20160624
  Receipt Date: 20160624
  Transmission Date: 20160815
  Serious: Yes (Other)
  Sender: FDA-Public Use
  Company Number: DE-CIPLA LTD.-2016DE08061

PATIENT

DRUGS (11)
  1. OLANZAPINE. [Suspect]
     Active Substance: OLANZAPINE
     Indication: BIPOLAR DISORDER
     Dosage: 1 MG/ TG
     Route: 048
  2. QUETIAPINE RETARD [Suspect]
     Active Substance: QUETIAPINE
     Dosage: 25 MG/TG
     Route: 048
     Dates: start: 20121213
  3. OLANZAPINE. [Suspect]
     Active Substance: OLANZAPINE
     Dosage: 2.5 MG/ TG
     Route: 048
     Dates: start: 201005, end: 201201
  4. MIRTAZAPINE. [Suspect]
     Active Substance: MIRTAZAPINE
     Indication: BIPOLAR DISORDER
     Dosage: 30 MG/TG
     Route: 048
     Dates: start: 2002, end: 201206
  5. PANTOZOL [Concomitant]
     Active Substance: PANTOPRAZOLE SODIUM
     Dosage: 40 MG/?
     Route: 048
  6. QUETIAPINE RETARD [Suspect]
     Active Substance: QUETIAPINE
     Indication: BIPOLAR I DISORDER
     Dosage: 100 MG/TG
     Route: 048
     Dates: start: 201206
  7. IBUPROFEN. [Concomitant]
     Active Substance: IBUPROFEN
     Dosage: 3 * 600 MG/TG
     Route: 048
     Dates: start: 20130702
  8. CITALOPRAM [Suspect]
     Active Substance: CITALOPRAM HYDROBROMIDE
     Indication: BIPOLAR DISORDER
     Dosage: 30 MG/TG
     Route: 048
     Dates: start: 2007
  9. MIRTAZAPINE. [Suspect]
     Active Substance: MIRTAZAPINE
     Dosage: 15 MG/TG
     Route: 048
     Dates: start: 201206, end: 201306
  10. PAROXETINE. [Suspect]
     Active Substance: PAROXETINE
     Indication: BIPOLAR DISORDER
     Dosage: UNK
     Route: 065
  11. CLEXANE [Concomitant]
     Active Substance: ENOXAPARIN SODIUM
     Dosage: 40 DF/TG
     Route: 058
     Dates: start: 20130702

REACTIONS (1)
  - Osteonecrosis [Not Recovered/Not Resolved]

NARRATIVE: CASE EVENT DATE: 201305
